FAERS Safety Report 23302460 (Version 2)
Quarter: 2024Q2

REPORT INFORMATION
  Report Type: Spontaneous
  Country: US (occurrence: US)
  Receive Date: 20231215
  Receipt Date: 20240516
  Transmission Date: 20240716
  Serious: Yes (Other)
  Sender: FDA-Public Use
  Company Number: US-SANOFI-01869998

PATIENT
  Age: 77 Year
  Sex: Male
  Weight: 180 kg

DRUGS (3)
  1. LANTUS SOLOSTAR [Suspect]
     Active Substance: INSULIN GLARGINE
     Indication: Type 2 diabetes mellitus
     Dosage: 20 UNITS AND 10 UNITS, Q12H (DRUG TREATMENT DURATION:OVER 25 YEARS)
  2. LANTUS SOLOSTAR [Suspect]
     Active Substance: INSULIN GLARGINE
     Dosage: 26 IU, QD
  3. GLYBURIDE [Concomitant]
     Active Substance: GLYBURIDE

REACTIONS (3)
  - Retinal detachment [Unknown]
  - Photosensitivity reaction [Recovered/Resolved]
  - Inappropriate schedule of product administration [Unknown]
